FAERS Safety Report 13515339 (Version 1)
Quarter: 2017Q2

REPORT INFORMATION
  Report Type: Spontaneous
  Country: FR (occurrence: FR)
  Receive Date: 20170504
  Receipt Date: 20170504
  Transmission Date: 20170830
  Serious: Yes (Disabling, Other)
  Sender: FDA-Public Use
  Company Number: FR-PFIZER INC-2017186853

PATIENT
  Age: 65 Year
  Sex: Male

DRUGS (7)
  1. CHONDROSULF [Concomitant]
     Active Substance: CHONDROITIN SULFATE (CHICKEN)
  2. CRESTOR [Concomitant]
     Active Substance: ROSUVASTATIN CALCIUM
  3. ATENOLOL. [Concomitant]
     Active Substance: ATENOLOL
  4. NOVATREX NOS [Suspect]
     Active Substance: AZITHROMYCIN OR METHOTREXATE SODIUM
     Dosage: 1 DF, WEEKLY
     Route: 048
     Dates: start: 201510, end: 201605
  5. COAPROVEL [Concomitant]
     Active Substance: HYDROCHLOROTHIAZIDE\IRBESARTAN
  6. LEVOTHYROX [Concomitant]
     Active Substance: LEVOTHYROXINE
  7. NOVATREX NOS [Suspect]
     Active Substance: AZITHROMYCIN OR METHOTREXATE SODIUM
     Indication: PSORIATIC ARTHROPATHY
     Dosage: UNK
     Route: 048
     Dates: start: 2000

REACTIONS (2)
  - Optic neuritis [Not Recovered/Not Resolved]
  - Chiasma syndrome [Not Recovered/Not Resolved]

NARRATIVE: CASE EVENT DATE: 201601
